FAERS Safety Report 6576164-0 (Version None)
Quarter: 2010Q1

REPORT INFORMATION
  Report Type: 
  Country: None (occurrence: None)
  Receive Date: 20100209
  Receipt Date: 20091228
  Transmission Date: 20100710
  Serious: Yes (Other)
  Sender: FDA-Public Use
  Company Number: PHHY2009SE60532

PATIENT
  Sex: Female

DRUGS (1)
  1. METHERGINE [Suspect]

REACTIONS (5)
  - ACCIDENTAL EXPOSURE [None]
  - CAESAREAN SECTION [None]
  - DRUG EXPOSURE DURING PREGNANCY [None]
  - PREMATURE LABOUR [None]
  - UTERINE CONTRACTIONS ABNORMAL [None]
